FAERS Safety Report 5936664-0 (Version None)
Quarter: 2008Q4

REPORT INFORMATION
  Report Type: 
  Country: None (occurrence: None)
  Receive Date: 20081030
  Receipt Date: 20081017
  Transmission Date: 20090506
  Serious: Yes (Hospitalization, Other)
  Sender: FDA-Public Use
  Company Number: US-ELI_LILLY_AND_COMPANY-US200810004325

PATIENT
  Sex: Female

DRUGS (3)
  1. FORTEO [Suspect]
  2. THYROID TAB [Concomitant]
  3. CALCIUM [Concomitant]

REACTIONS (9)
  - DRUG INEFFECTIVE [None]
  - FALL [None]
  - FEMUR FRACTURE [None]
  - GAIT DISTURBANCE [None]
  - HAEMORRHAGE [None]
  - PELVIC FRACTURE [None]
  - RIB FRACTURE [None]
  - SKIN ATROPHY [None]
  - WRIST FRACTURE [None]
